FAERS Safety Report 24694087 (Version 4)
Quarter: 2025Q1

REPORT INFORMATION
  Report Type: Spontaneous
  Country: PL (occurrence: PL)
  Receive Date: 20241204
  Receipt Date: 20250305
  Transmission Date: 20250408
  Serious: Yes (Hospitalization, Other)
  Sender: ORGANON
  Company Number: PL-MYLANLABS-2024M1104847

PATIENT
  Age: 90 Year
  Sex: Female

DRUGS (22)
  1. DESLORATADINE [Suspect]
     Active Substance: DESLORATADINE
     Indication: Skin bacterial infection
     Route: 065
  2. DESLORATADINE [Suspect]
     Active Substance: DESLORATADINE
     Indication: Skin lesion
  3. DESLORATADINE [Suspect]
     Active Substance: DESLORATADINE
     Indication: Evidence based treatment
  4. RIVAROXABAN [Suspect]
     Active Substance: RIVAROXABAN
     Indication: Skin lesion
     Route: 065
  5. RIVAROXABAN [Suspect]
     Active Substance: RIVAROXABAN
     Indication: Product used for unknown indication
  6. AMOXICILLIN\CLAVULANIC ACID [Suspect]
     Active Substance: AMOXICILLIN\CLAVULANIC ACID
     Indication: Skin bacterial infection
     Route: 065
  7. AMOXICILLIN\CLAVULANIC ACID [Suspect]
     Active Substance: AMOXICILLIN\CLAVULANIC ACID
     Indication: Skin lesion
  8. AMOXICILLIN\CLAVULANIC ACID [Suspect]
     Active Substance: AMOXICILLIN\CLAVULANIC ACID
     Indication: Evidence based treatment
  9. PREDNISONE [Suspect]
     Active Substance: PREDNISONE
     Indication: Pemphigoid
  10. QUETIAPINE FUMARATE [Suspect]
     Active Substance: QUETIAPINE FUMARATE
     Indication: Skin lesion
     Route: 065
  11. QUETIAPINE [Concomitant]
     Active Substance: QUETIAPINE
     Indication: Product used for unknown indication
     Route: 065
  12. BETAMETHASONE DIPROPIONATE\CLOTRIMAZOLE\GENTAMICIN SULFATE [Concomitant]
     Active Substance: BETAMETHASONE DIPROPIONATE\CLOTRIMAZOLE\GENTAMICIN SULFATE
     Indication: Skin lesion
     Route: 061
  13. CLOBETASOL PROPIONATE [Concomitant]
     Active Substance: CLOBETASOL PROPIONATE
     Indication: Rebound effect
  14. DOXYCYCLINE [Concomitant]
     Active Substance: DOXYCYCLINE
     Indication: Rebound effect
     Route: 048
  15. NIACINAMIDE [Concomitant]
     Active Substance: NIACINAMIDE
     Indication: Product used for unknown indication
  16. METHYLPREDNISOLONE [Concomitant]
     Active Substance: METHYLPREDNISOLONE
     Indication: Type III immune complex mediated reaction
     Dosage: AT AN INITIAL DOSE; THEN CHRONIC ADMINISTRATION OF THE DRUG AT SLOWLY TAPERED DOSES
     Route: 048
  17. METHYLPREDNISOLONE [Concomitant]
     Active Substance: METHYLPREDNISOLONE
     Indication: Type III immune complex mediated reaction
  18. BETAMETHASONE DIPROPIONATE [Concomitant]
     Active Substance: BETAMETHASONE DIPROPIONATE
     Indication: Skin lesion
     Route: 061
  19. CLOTRIMAZOLE [Concomitant]
     Active Substance: CLOTRIMAZOLE
     Indication: Skin lesion
     Route: 061
  20. GENTAMICIN SULFATE [Concomitant]
     Active Substance: GENTAMICIN SULFATE
     Indication: Skin lesion
     Route: 061
  21. DESLORATADINE [Concomitant]
     Active Substance: DESLORATADINE
     Indication: Product used for unknown indication
     Route: 065
  22. GENTAMYCIN SULFATE AND BISMUTH SUBCARBONATE [Concomitant]
     Indication: Skin lesion

REACTIONS (10)
  - Pemphigoid [Unknown]
  - Basal cell carcinoma [Unknown]
  - Skin bacterial infection [Unknown]
  - Neoplasm [Unknown]
  - Rebound effect [Unknown]
  - Condition aggravated [Unknown]
  - Product prescribing error [Unknown]
  - Medication error [Unknown]
  - Skin lesion [Not Recovered/Not Resolved]
  - Rash [Unknown]
